FAERS Safety Report 17807154 (Version 7)
Quarter: 2020Q4

REPORT INFORMATION
  Report Type: Report from Study
  Country: US (occurrence: US)
  Receive Date: 20200520
  Receipt Date: 20201119
  Transmission Date: 20210113
  Serious: Yes (Other)
  Sender: FDA-Public Use
  Company Number: US-B.I. PHARMACEUTICALS,INC./RIDGEFIELD-2020-BI-020731

PATIENT
  Age: 86 Year
  Sex: Male

DRUGS (2)
  1. OFEV [Suspect]
     Active Substance: NINTEDANIB
     Indication: IDIOPATHIC PULMONARY FIBROSIS
     Dosage: 150MG  EVERY 12 HOURS WITH FOOD
     Route: 048
     Dates: start: 20200410, end: 20200506
  2. OFEV [Suspect]
     Active Substance: NINTEDANIB
     Dosage: 1 CAP BID
     Route: 048

REACTIONS (9)
  - Diarrhoea [Not Recovered/Not Resolved]
  - Diarrhoea [Recovered/Resolved]
  - Dyspnoea [Not Recovered/Not Resolved]
  - Cough [Not Recovered/Not Resolved]
  - Pruritus genital [Not Recovered/Not Resolved]
  - Productive cough [Not Recovered/Not Resolved]
  - Loss of personal independence in daily activities [Unknown]
  - Hernia [Not Recovered/Not Resolved]
  - Memory impairment [Unknown]

NARRATIVE: CASE EVENT DATE: 20200506
